FAERS Safety Report 24978722 (Version 1)
Quarter: 2025Q1

REPORT INFORMATION
  Report Type: Report from Study
  Country: US (occurrence: US)
  Receive Date: 20250218
  Receipt Date: 20250218
  Transmission Date: 20250409
  Serious: Yes (Death)
  Sender: ABBVIE
  Company Number: US-ABBVIE-5895208

PATIENT
  Age: 77 Year
  Sex: Female

DRUGS (1)
  1. VENETOCLAX [Suspect]
     Active Substance: VENETOCLAX
     Indication: Myelodysplastic syndrome
     Dosage: FORM STRENGTH: 50 MG. TAKE 50 MG DAILY DAY 1 TO 7 Q 28 DAYS
     Route: 048

REACTIONS (2)
  - Death [Fatal]
  - Off label use [Unknown]
